FAERS Safety Report 16897937 (Version 1)
Quarter: 2019Q4

REPORT INFORMATION
  Report Type: Spontaneous
  Country: US (occurrence: US)
  Receive Date: 20191009
  Receipt Date: 20191009
  Transmission Date: 20200122
  Serious: No
  Sender: FDA-Public Use
  Company Number: US-KARYOPHARM-2019KPT000426

PATIENT

DRUGS (1)
  1. XPOVIO [Suspect]
     Active Substance: SELINEXOR
     Indication: PLASMA CELL MYELOMA
     Dosage: 80 MG, 2X/WEEK
     Route: 048
     Dates: start: 20190813

REACTIONS (14)
  - Photophobia [Unknown]
  - Nausea [Unknown]
  - Rhinorrhoea [Unknown]
  - Hiccups [Unknown]
  - Fatigue [Unknown]
  - Vision blurred [Unknown]
  - Decreased appetite [Unknown]
  - Vomiting [Unknown]
  - Anal incontinence [Unknown]
  - Hypomagnesaemia [Unknown]
  - Weight decreased [Unknown]
  - Thrombocytopenia [Unknown]
  - Anaemia [Unknown]
  - Hypokalaemia [Unknown]
